FAERS Safety Report 4709379-4 (Version None)
Quarter: 2005Q3

REPORT INFORMATION
  Report Type: 
  Country: None (occurrence: None)
  Receive Date: 20050706
  Receipt Date: 20050706
  Transmission Date: 20060218
  Serious: Yes (Life-Threatening, Hospitalization)
  Sender: FDA-Public Use
  Company Number: None

PATIENT
  Age: 66 Year
  Sex: Female
  Weight: 87.0906 kg

DRUGS (3)
  1. SEROQUEL [Suspect]
     Indication: AGITATION
     Dosage: 100MG   BEDTIME  ORAL
     Route: 048
     Dates: start: 20050607, end: 20050618
  2. SEROQUEL [Suspect]
     Indication: ANXIETY
     Dosage: 100MG   BEDTIME  ORAL
     Route: 048
     Dates: start: 20050607, end: 20050618
  3. HALDOL [Suspect]
     Indication: AGITATION
     Dosage: 10 MG  PRN   INTRAVENOU
     Route: 042
     Dates: start: 20050612, end: 20050618

REACTIONS (1)
  - NEUROLEPTIC MALIGNANT SYNDROME [None]
